FAERS Safety Report 20055491 (Version 1)
Quarter: 2021Q4

REPORT INFORMATION
  Report Type: Spontaneous
  Country: US (occurrence: US)
  Receive Date: 20211110
  Receipt Date: 20211110
  Transmission Date: 20220303
  Serious: No
  Sender: FDA-Public Use
  Company Number: US-JNJFOC-20211103928

PATIENT
  Age: 42 Year
  Sex: Male

DRUGS (1)
  1. SIMPONI [Suspect]
     Active Substance: GOLIMUMAB
     Indication: Product used for unknown indication
     Route: 058

REACTIONS (4)
  - Product dose omission issue [Unknown]
  - Device issue [Unknown]
  - Underdose [Unknown]
  - Extra dose administered [Unknown]

NARRATIVE: CASE EVENT DATE: 20211025
